FAERS Safety Report 8083374-2 (Version None)
Quarter: 2012Q1

REPORT INFORMATION
  Report Type: 
  Country: None (occurrence: None)
  Receive Date: 20120127
  Receipt Date: 20110203
  Transmission Date: 20120608
  Serious: No
  Sender: FDA-Public Use
  Company Number: US-ABBOTT-11P-163-0702826-00

PATIENT
  Sex: Female
  Weight: 49.032 kg

DRUGS (2)
  1. HUMIRA [Suspect]
     Indication: CROHN'S DISEASE
     Route: 058
     Dates: start: 20100201, end: 20100901
  2. HUMIRA [Suspect]
     Route: 058
     Dates: start: 20101021

REACTIONS (8)
  - OPEN WOUND [None]
  - URTICARIA [None]
  - STAPHYLOCOCCAL INFECTION [None]
  - CROHN'S DISEASE [None]
  - INJECTION SITE PAIN [None]
  - RASH [None]
  - ALOPECIA [None]
  - IMPETIGO [None]
